FAERS Safety Report 5268914-0 (Version None)
Quarter: 2007Q1

REPORT INFORMATION
  Report Type: 
  Country: None (occurrence: None)
  Receive Date: 20061213
  Receipt Date: 20030811
  Transmission Date: 20070707
  Serious: Yes (Other)
  Sender: FDA-Public Use
  Company Number: 2003UW08996

PATIENT
  Age: 68 Year
  Sex: Male
  Weight: 78.0187 kg

DRUGS (1)
  1. IRESSA [Suspect]
     Indication: NON-SMALL CELL LUNG CANCER
     Dosage: 250 MG PO
     Route: 048
     Dates: start: 20030601

REACTIONS (3)
  - DERMATITIS ACNEIFORM [None]
  - DIARRHOEA [None]
  - NAIL DISCOLOURATION [None]
